FAERS Safety Report 5971334-4 (Version None)
Quarter: 2008Q4

REPORT INFORMATION
  Report Type: 
  Country: None (occurrence: None)
  Receive Date: 20081128
  Receipt Date: 20081125
  Transmission Date: 20090506
  Serious: Yes (Other)
  Sender: FDA-Public Use
  Company Number: US-PFIZER INC-2008100017

PATIENT

DRUGS (1)
  1. TIKOSYN [Suspect]

REACTIONS (1)
  - PNEUMONIA [None]
